FAERS Safety Report 5957189-2 (Version None)
Quarter: 2008Q4

REPORT INFORMATION
  Report Type: 
  Country: None (occurrence: None)
  Receive Date: 20081118
  Receipt Date: 20081103
  Transmission Date: 20090506
  Serious: Yes (Hospitalization)
  Sender: FDA-Public Use
  Company Number: FR-GENENTECH-271197

PATIENT
  Age: 70 Year
  Sex: Male

DRUGS (1)
  1. MABTHERA [Suspect]
     Indication: ANAEMIA HAEMOLYTIC AUTOIMMUNE
     Dosage: UNK

REACTIONS (2)
  - PHLEBITIS [None]
  - PULMONARY EMBOLISM [None]
